FAERS Safety Report 17192554 (Version 2)
Quarter: 2020Q1

REPORT INFORMATION
  Report Type: Spontaneous
  Country: CA (occurrence: CA)
  Receive Date: 20191223
  Receipt Date: 20200131
  Transmission Date: 20200409
  Serious: Yes (Hospitalization)
  Sender: FDA-Public Use
  Company Number: CA-TAKEDA-2019TUS072721

PATIENT
  Age: 60 Year
  Sex: Male
  Weight: 59 kg

DRUGS (1)
  1. ULORIC [Suspect]
     Active Substance: FEBUXOSTAT
     Indication: GOUT
     Dosage: 80 MILLIGRAM, QD
     Route: 048
     Dates: start: 20190801, end: 20190811

REACTIONS (5)
  - Thrombocytopenia [Recovered/Resolved]
  - Tongue haematoma [Recovered/Resolved]
  - Haematoma [Recovered/Resolved]
  - Gingival bleeding [Recovered/Resolved]
  - Petechiae [Recovered/Resolved]

NARRATIVE: CASE EVENT DATE: 20190811
